FAERS Safety Report 9877096 (Version 2)
Quarter: 2014Q1

REPORT INFORMATION
  Report Type: Spontaneous
  Country: US (occurrence: US)
  Receive Date: 20140206
  Receipt Date: 20140304
  Transmission Date: 20141002
  Serious: No
  Sender: FDA-Public Use
  Company Number: US-009507513-1401USA007390

PATIENT
  Sex: Female
  Weight: 57.14 kg

DRUGS (1)
  1. NUVARING [Suspect]
     Indication: CONTRACEPTION
     Dosage: 3 WEEKS IN 1 WEEK OUT
     Route: 067
     Dates: start: 20130826, end: 20131202

REACTIONS (5)
  - Headache [Unknown]
  - Thrombosis [Unknown]
  - Metrorrhagia [Unknown]
  - Vaginal discharge [Unknown]
  - Pelvic pain [Unknown]
